FAERS Safety Report 22526375 (Version 1)
Quarter: 2023Q2

REPORT INFORMATION
  Report Type: Spontaneous
  Country: US (occurrence: US)
  Receive Date: 20230606
  Receipt Date: 20230606
  Transmission Date: 20230722
  Serious: No
  Sender: FDA-Public Use
  Company Number: US-PFIZER INC-202300210195

PATIENT
  Sex: Female

DRUGS (2)
  1. SIROLIMUS [Suspect]
     Active Substance: SIROLIMUS
     Indication: Renal transplant
     Dosage: 1 DF
  2. SIROLIMUS [Suspect]
     Active Substance: SIROLIMUS
     Dosage: 0.5 DF

REACTIONS (2)
  - Intentional product misuse [Unknown]
  - Drug level decreased [Unknown]
